FAERS Safety Report 15702063 (Version 1)
Quarter: 2018Q4

REPORT INFORMATION
  Report Type: Report from Study
  Country: None (occurrence: BR)
  Receive Date: 20181209
  Receipt Date: 20181209
  Transmission Date: 20190205
  Serious: Yes (Other)
  Sender: FDA-Public Use
  Company Number: BR-ABBVIE-18K-020-2580937-00

PATIENT
  Sex: Female

DRUGS (1)
  1. HUMIRA [Suspect]
     Active Substance: ADALIMUMAB
     Indication: ANKYLOSING SPONDYLITIS
     Route: 058
     Dates: start: 20180713, end: 20181020

REACTIONS (3)
  - Leiomyoma [Unknown]
  - Hysterectomy [Unknown]
  - Uterine enlargement [Unknown]

NARRATIVE: CASE EVENT DATE: 2018
